FAERS Safety Report 8573566-8 (Version None)
Quarter: 2012Q3

REPORT INFORMATION
  Report Type: 
  Country: None (occurrence: None)
  Receive Date: 20120806
  Receipt Date: 20120724
  Transmission Date: 20120928
  Serious: No
  Sender: FDA-Public Use
  Company Number: US-ROXANE LABORATORIES, INC.-2012-RO-01495RO

PATIENT
  Sex: Female

DRUGS (3)
  1. ZYPREXA [Concomitant]
  2. ABILIFY [Concomitant]
  3. QUETIAPINE FUMARATE [Suspect]
     Indication: SCHIZOPHRENIA
     Dosage: 1200 MG
     Route: 048

REACTIONS (3)
  - DRUG INEFFECTIVE [None]
  - DISORIENTATION [None]
  - PRODUCT QUALITY ISSUE [None]
